FAERS Safety Report 6043525-8 (Version None)
Quarter: 2009Q1

REPORT INFORMATION
  Report Type: 
  Country: None (occurrence: None)
  Receive Date: 20090114
  Receipt Date: 20090114
  Transmission Date: 20090719
  Serious: Yes (Hospitalization)
  Sender: FDA-Public Use
  Company Number: None

PATIENT
  Age: 62 Year
  Sex: Female
  Weight: 56.6996 kg

DRUGS (3)
  1. AVELOX [Suspect]
     Indication: BRONCHITIS
     Dosage: 400MG 1 TAB. DAILY PO
     Route: 048
     Dates: start: 20080327, end: 20080328
  2. AVELOX [Suspect]
     Indication: OTITIS MEDIA
     Dosage: 400MG 1 TAB. DAILY PO
     Route: 048
     Dates: start: 20080327, end: 20080328
  3. AVELOX [Suspect]
     Indication: PHARYNGITIS
     Dosage: 400MG 1 TAB. DAILY PO
     Route: 048
     Dates: start: 20080327, end: 20080328

REACTIONS (15)
  - ACTIVITIES OF DAILY LIVING IMPAIRED [None]
  - BLISTER [None]
  - CHEST PAIN [None]
  - EATING DISORDER [None]
  - EYE SWELLING [None]
  - GAIT DISTURBANCE [None]
  - IMPAIRED DRIVING ABILITY [None]
  - LIP BLISTER [None]
  - MUSCLE SPASMS [None]
  - PAIN IN EXTREMITY [None]
  - PRURITUS [None]
  - SENSORY LOSS [None]
  - SWELLING FACE [None]
  - TRISMUS [None]
  - WEIGHT DECREASED [None]
